FAERS Safety Report 12319816 (Version 1)
Quarter: 2016Q2

REPORT INFORMATION
  Report Type: Spontaneous
  Country: US (occurrence: US)
  Receive Date: 20160429
  Receipt Date: 20160429
  Transmission Date: 20160815
  Serious: No
  Sender: FDA-Public Use
  Company Number: US-ROCHE-1616829

PATIENT
  Sex: Female

DRUGS (7)
  1. LUCENTIS [Suspect]
     Active Substance: RANIBIZUMAB
     Indication: NEOVASCULAR AGE-RELATED MACULAR DEGENERATION
     Route: 065
     Dates: start: 2013, end: 201501
  2. EYLEA [Suspect]
     Active Substance: AFLIBERCEPT
     Route: 031
     Dates: start: 20150629, end: 20150629
  3. EYLEA [Suspect]
     Active Substance: AFLIBERCEPT
     Route: 031
     Dates: start: 20150504, end: 20150504
  4. PRESERVISION AREDS [Concomitant]
     Active Substance: MINERALS\VITAMINS
  5. EYLEA [Suspect]
     Active Substance: AFLIBERCEPT
     Indication: NEOVASCULAR AGE-RELATED MACULAR DEGENERATION
     Route: 031
     Dates: start: 20150130, end: 20150130
  6. AVASTIN [Suspect]
     Active Substance: BEVACIZUMAB
     Indication: NEOVASCULAR AGE-RELATED MACULAR DEGENERATION
     Route: 065
  7. EYLEA [Suspect]
     Active Substance: AFLIBERCEPT
     Route: 031
     Dates: start: 20150316, end: 20150316

REACTIONS (6)
  - Dyspnoea [Unknown]
  - Swelling [Not Recovered/Not Resolved]
  - Chest pain [Unknown]
  - Hypersensitivity [Unknown]
  - Drug ineffective [Unknown]
  - Off label use [Unknown]
